FAERS Safety Report 25680359 (Version 1)
Quarter: 2025Q3

REPORT INFORMATION
  Report Type: Spontaneous
  Country: US (occurrence: US)
  Receive Date: 20250814
  Receipt Date: 20250814
  Transmission Date: 20251020
  Serious: Yes (Hospitalization, Other)
  Sender: SANDOZ
  Company Number: US-002147023-NVSC2023US159448

PATIENT
  Age: 63 Year
  Sex: Female
  Weight: 56.7 kg

DRUGS (5)
  1. TYVASO [Suspect]
     Active Substance: TREPROSTINIL
     Dosage: 80 UG, QID, (48 UG PLUS 32 UG)
     Route: 055
     Dates: start: 2023
  2. TYVASO [Suspect]
     Active Substance: TREPROSTINIL
     Route: 055
  3. TYVASO [Suspect]
     Active Substance: TREPROSTINIL
     Indication: Pulmonary arterial hypertension
     Dosage: 32 UG, QID,
     Route: 055
     Dates: start: 20230223
  4. ZOFRAN [Suspect]
     Active Substance: ONDANSETRON HYDROCHLORIDE
     Indication: Nausea
     Route: 055
  5. SILDENAFIL CITRATE [Concomitant]
     Active Substance: SILDENAFIL CITRATE
     Indication: Product used for unknown indication
     Route: 065
     Dates: start: 2023

REACTIONS (6)
  - Pulmonary arterial hypertension [Unknown]
  - Confusional state [Unknown]
  - Nausea [Not Recovered/Not Resolved]
  - Vomiting [Not Recovered/Not Resolved]
  - Therapy non-responder [Unknown]
  - Incorrect route of product administration [Unknown]

NARRATIVE: CASE EVENT DATE: 20230608
